FAERS Safety Report 5156675-5 (Version None)
Quarter: 2006Q4

REPORT INFORMATION
  Report Type: 
  Country: None (occurrence: None)
  Receive Date: 20061122
  Receipt Date: 20060523
  Transmission Date: 20070319
  Serious: Yes (Other)
  Sender: FDA-Public Use
  Company Number: DEWYE647523MAY06

PATIENT
  Sex: Male

DRUGS (3)
  1. ENBREL [Suspect]
     Indication: PSORIATIC ARTHROPATHY
     Route: 058
  2. ISONIAZID [Suspect]
     Route: 048
  3. METHOTREXATE [Concomitant]
     Route: 065

REACTIONS (1)
  - BLINDNESS UNILATERAL [None]
